FAERS Safety Report 13615481 (Version 10)
Quarter: 2024Q3

REPORT INFORMATION
  Report Type: Spontaneous
  Country: JP (occurrence: JP)
  Receive Date: 20170606
  Receipt Date: 20240827
  Transmission Date: 20241017
  Serious: Yes (Other)
  Sender: PFIZER
  Company Number: JP-MLMSERVICE-20160928-0437868-2

PATIENT
  Age: 65 Year
  Sex: Male

DRUGS (4)
  1. PACLITAXEL [Suspect]
     Active Substance: PACLITAXEL
     Indication: Extramammary Paget^s disease
     Dosage: 120 MG/M2, CYCLIC (2 WEEKS ON/2 WEEKS OFF)
  2. EPIRUBICIN HYDROCHLORIDE [Suspect]
     Active Substance: EPIRUBICIN HYDROCHLORIDE
     Indication: Extramammary Paget^s disease
     Dosage: 50 MG/M2, CYCLIC (2 WEEKS ON/2 WEEKS OFF)
  3. CISPLATIN [Suspect]
     Active Substance: CISPLATIN
     Indication: Extramammary Paget^s disease
     Dosage: 30 MG/M2, CYCLIC (2 WEEKS ON/2 WEEKS OFF)
  4. DOCETAXEL [Suspect]
     Active Substance: DOCETAXEL\DOCETAXEL ANHYDROUS
     Indication: Extramammary Paget^s disease
     Dosage: 25 MG/M2, WEEKLY, CYCLIC

REACTIONS (1)
  - Haematotoxicity [Unknown]
